FAERS Safety Report 22362057 (Version 3)
Quarter: 2023Q2

REPORT INFORMATION
  Report Type: Spontaneous
  Country: US (occurrence: US)
  Receive Date: 20230524
  Receipt Date: 20230622
  Transmission Date: 20230722
  Serious: Yes (Death, Hospitalization)
  Sender: FDA-Public Use
  Company Number: US-PFIZER INC-202300196326

PATIENT
  Age: 71 Year
  Sex: Male
  Weight: 90.703 kg

DRUGS (1)
  1. VYNDAMAX [Suspect]
     Active Substance: TAFAMIDIS
     Indication: Amyloidosis
     Dosage: ONCE EVERY MORNING
     Dates: end: 20230506

REACTIONS (5)
  - Cardiac disorder [Fatal]
  - Myelodysplastic syndrome [Fatal]
  - Amyloidosis [Fatal]
  - Condition aggravated [Fatal]
  - Cardiac failure [Fatal]
